FAERS Safety Report 13337681 (Version 1)
Quarter: 2017Q1

REPORT INFORMATION
  Report Type: Report from Study
  Country: US (occurrence: US)
  Receive Date: 20170315
  Receipt Date: 20170315
  Transmission Date: 20170428
  Serious: Yes (Other)
  Sender: FDA-Public Use
  Company Number: US-PFIZER INC-2017105040

PATIENT
  Age: 50 Year
  Sex: Female

DRUGS (3)
  1. IBRANCE [Suspect]
     Active Substance: PALBOCICLIB
     Dosage: CYCLIC, 75 MG ON TTSS AND 100 MG ON MWF, FOR 21 DAYS AND 7 DAYS OFF TO 28 DAYS CYCLE)
     Route: 048
     Dates: start: 20170208
  2. IBRANCE [Suspect]
     Active Substance: PALBOCICLIB
     Indication: BREAST CANCER
     Dosage: 75 MG, CYCLIC, (DAILY FOR DAY 1- DAY 21 FOLLOWED BY 7 DAYS OFF)
     Route: 048
     Dates: start: 20161020, end: 20170207
  3. FEMARA [Suspect]
     Active Substance: LETROZOLE
     Indication: BREAST CANCER
     Dosage: UNK
     Route: 048

REACTIONS (4)
  - Back pain [Unknown]
  - Bone marrow failure [Unknown]
  - Constipation [Unknown]
  - Fatigue [Unknown]
